FAERS Safety Report 6680237-1 (Version None)
Quarter: 2010Q2

REPORT INFORMATION
  Report Type: 
  Country: None (occurrence: None)
  Receive Date: 20100413
  Receipt Date: 20100402
  Transmission Date: 20101027
  Serious: Yes (Other)
  Sender: FDA-Public Use
  Company Number: DE-AMGEN-US405457

PATIENT
  Age: 11 Year
  Sex: Female

DRUGS (4)
  1. ENBREL [Suspect]
     Indication: JUVENILE ARTHRITIS
     Route: 058
  2. NAPROXEN [Concomitant]
     Indication: JUVENILE ARTHRITIS
     Dosage: UNKNOWN
     Route: 065
  3. PREDNISOLONE [Concomitant]
     Indication: JUVENILE ARTHRITIS
     Route: 065
  4. PREDNISOLONE [Concomitant]

REACTIONS (1)
  - CROHN'S DISEASE [None]
